FAERS Safety Report 4497014-2 (Version None)
Quarter: 2004Q3

REPORT INFORMATION
  Report Type: 
  Country: None (occurrence: None)
  Receive Date: 20040928
  Receipt Date: 20040727
  Transmission Date: 20050211
  Serious: No
  Sender: FDA-Public Use
  Company Number: 04P-163-0268208-00

PATIENT
  Age: 56 Year
  Sex: Female

DRUGS (4)
  1. HUMIRA [Suspect]
     Indication: RHEUMATOID ARTHRITIS
     Dosage: 40 MG, 1 IN 1 2 WK, SUBCUTANEOUS
     Route: 058
     Dates: start: 20040601
  2. METHOTREXATE [Concomitant]
  3. PROPACET 100 [Concomitant]
  4. OXYCOCET [Concomitant]

REACTIONS (5)
  - DRY EYE [None]
  - EYE PRURITUS [None]
  - KERATOCONJUNCTIVITIS SICCA [None]
  - PHOTOSENSITIVITY REACTION [None]
  - VISION BLURRED [None]
